FAERS Safety Report 19483698 (Version 1)
Quarter: 2021Q3

REPORT INFORMATION
  Report Type: Spontaneous
  Country: US (occurrence: US)
  Receive Date: 20210701
  Receipt Date: 20210701
  Transmission Date: 20211014
  Serious: No
  Sender: FDA-Public Use
  Company Number: US-ROCHE-2646793

PATIENT
  Sex: Female

DRUGS (10)
  1. OXYCONTIN [Concomitant]
     Active Substance: OXYCODONE HYDROCHLORIDE
  2. MS CONTIN [Concomitant]
     Active Substance: MORPHINE SULFATE
  3. BUTRANS [Concomitant]
     Active Substance: BUPRENORPHINE
  4. TRAMADOL. [Concomitant]
     Active Substance: TRAMADOL
  5. METHADONE [Concomitant]
     Active Substance: METHADONE HYDROCHLORIDE
  6. DILAUDID [Concomitant]
     Active Substance: HYDROMORPHONE HYDROCHLORIDE
  7. NORCO [Concomitant]
     Active Substance: ACETAMINOPHEN\HYDROCODONE BITARTRATE
  8. HYDROCODONE [Concomitant]
     Active Substance: HYDROCODONE
  9. KLONOPIN [Suspect]
     Active Substance: CLONAZEPAM
     Indication: PRODUCT USED FOR UNKNOWN INDICATION
     Route: 065
  10. OXYCODONE [Concomitant]
     Active Substance: OXYCODONE

REACTIONS (1)
  - Loss of personal independence in daily activities [Unknown]
